FAERS Safety Report 8050716-3 (Version None)
Quarter: 2012Q1

REPORT INFORMATION
  Report Type: 
  Country: None (occurrence: None)
  Receive Date: 20120117
  Receipt Date: 20120117
  Transmission Date: 20120608
  Serious: Yes (Disabling, Other)
  Sender: FDA-Public Use
  Company Number: None

PATIENT
  Age: 21 Year
  Sex: Female
  Weight: 58.967 kg

DRUGS (1)
  1. PARAGARD T 380A [Suspect]

REACTIONS (4)
  - DEVICE EXPULSION [None]
  - MEDICAL DEVICE COMPLICATION [None]
  - HAEMORRHAGE [None]
  - DEVICE DISLOCATION [None]
